FAERS Safety Report 25748232 (Version 2)
Quarter: 2025Q3

REPORT INFORMATION
  Report Type: Report from Study
  Country: US (occurrence: US)
  Receive Date: 20250902
  Receipt Date: 20250927
  Transmission Date: 20251021
  Serious: No
  Sender: SANOFI AVENTIS
  Company Number: US-SA-2025SA256720

PATIENT
  Age: 74 Year
  Sex: Female

DRUGS (15)
  1. DUPILUMAB [Suspect]
     Active Substance: DUPILUMAB
     Indication: Hypervolaemia
     Route: 058
     Dates: start: 20250731, end: 20250731
  2. DUPILUMAB [Suspect]
     Active Substance: DUPILUMAB
     Indication: Asthma
  3. ASPIRIN [Concomitant]
     Active Substance: ASPIRIN
  4. FUROSEMIDE [Concomitant]
     Active Substance: FUROSEMIDE
  5. LANTUS SOLOSTAR [Concomitant]
     Active Substance: INSULIN GLARGINE
  6. LISINOPRIL [Concomitant]
     Active Substance: LISINOPRIL
  7. METFORMIN HYDROCHLORIDE [Concomitant]
     Active Substance: METFORMIN HYDROCHLORIDE
  8. OMEPRAZOLE [Concomitant]
     Active Substance: OMEPRAZOLE
  9. PAROXETINE HYDROCHLORIDE [Concomitant]
     Active Substance: PAROXETINE HYDROCHLORIDE
  10. SIMVASTATIN [Concomitant]
     Active Substance: SIMVASTATIN
  11. SPIRIVA RESPIMAT [Concomitant]
     Active Substance: TIOTROPIUM BROMIDE
  12. TRIAMTERENE [Concomitant]
     Active Substance: TRIAMTERENE
  13. PAROXETINE HYDROCHLORIDE [Concomitant]
     Active Substance: PAROXETINE HYDROCHLORIDE
  14. METFORMIN HYDROCHLORIDE [Concomitant]
     Active Substance: METFORMIN HYDROCHLORIDE
  15. SPIRIVA [Concomitant]
     Active Substance: TIOTROPIUM BROMIDE MONOHYDRATE

REACTIONS (4)
  - Pulmonary pain [Recovered/Resolved]
  - Musculoskeletal chest pain [Recovered/Resolved]
  - Back pain [Recovered/Resolved]
  - Product use in unapproved indication [Unknown]

NARRATIVE: CASE EVENT DATE: 20250731
